FAERS Safety Report 15164229 (Version 9)
Quarter: 2021Q3

REPORT INFORMATION
  Report Type: Spontaneous
  Country: US (occurrence: US)
  Receive Date: 20180719
  Receipt Date: 20210824
  Transmission Date: 20211014
  Serious: No
  Sender: FDA-Public Use
  Company Number: US-PFIZER INC-2016139969

PATIENT
  Age: 58 Year
  Sex: Female
  Weight: 124 kg

DRUGS (25)
  1. TRAZODONE [Concomitant]
     Active Substance: TRAZODONE HYDROCHLORIDE
     Dosage: 150 MG, 1X/DAY (AT BEDTIME)
     Route: 048
     Dates: start: 20160627
  2. OMEPRAZOLE. [Concomitant]
     Active Substance: OMEPRAZOLE
     Dosage: UNK
  3. OMEPRAZOLE. [Concomitant]
     Active Substance: OMEPRAZOLE
     Dosage: 20 MG, 1X/DAY(BEFORE MEALS)
     Route: 048
     Dates: start: 20160913
  4. TRAMADOL. [Concomitant]
     Active Substance: TRAMADOL
     Indication: PAIN
     Dosage: 50 MG, AS NEEDED (1 TABLETS UP TO 4X DAILY)
     Route: 048
     Dates: start: 20161115
  5. LIDOCAINE. [Concomitant]
     Active Substance: LIDOCAINE
     Indication: PAIN
     Dosage: UNK, AS NEEDED (INSERT 1 APPLICATION RECTALLY FOUR TIMES PER DAY AND PRIOR TO BM)
     Route: 054
     Dates: start: 20161116, end: 201701
  6. LISINOPRIL HCTZ [Concomitant]
     Active Substance: HYDROCHLOROTHIAZIDE\LISINOPRIL
     Indication: ROUTINE HEALTH MAINTENANCE
     Dosage: UNK
  7. VITAMIN D3 [Concomitant]
     Active Substance: CHOLECALCIFEROL
     Indication: ROUTINE HEALTH MAINTENANCE
     Dosage: 2000 IU, 1X/DAY
     Route: 048
     Dates: start: 20130425
  8. LYRICA [Suspect]
     Active Substance: PREGABALIN
     Indication: PAIN
     Dosage: 75 MG, QID (4X/DAY)
     Route: 048
  9. TRAZODONE [Concomitant]
     Active Substance: TRAZODONE HYDROCHLORIDE
     Dosage: 150 MG, 1X/DAY (AT BEDTIME)
     Route: 048
  10. CETIRIZINE HCL [Concomitant]
     Active Substance: CETIRIZINE HYDROCHLORIDE
     Dosage: 10 MG, 1X/DAY
     Route: 048
     Dates: start: 20150604
  11. ALBUTEROL. [Concomitant]
     Active Substance: ALBUTEROL
     Dosage: 17 G, UNK  (2 PUFF (S))
  12. VENTOLIN HFA [Concomitant]
     Active Substance: ALBUTEROL SULFATE
     Indication: ROUTINE HEALTH MAINTENANCE
     Dosage: UNK, AS NEEDED
  13. VITAMIN D3 [Concomitant]
     Active Substance: CHOLECALCIFEROL
     Dosage: 2000 IU, DAILY
     Route: 048
  14. VITAMIN B12 [Concomitant]
     Active Substance: CYANOCOBALAMIN
     Indication: ROUTINE HEALTH MAINTENANCE
     Dosage: 1000 UG, 1X/DAY
     Route: 048
     Dates: start: 20130425
  15. PROCTOSOL HC [Concomitant]
     Dosage: UNK, AS NEEDED (INSERT 1 CREAM RECTALLY TWICE DAILY AS NEEDED)
     Route: 054
     Dates: start: 20161122, end: 201701
  16. ADVAIR HFA [Concomitant]
     Active Substance: FLUTICASONE PROPIONATE\SALMETEROL XINAFOATE
     Indication: ROUTINE HEALTH MAINTENANCE
     Dosage: UNK
  17. LYRICA [Suspect]
     Active Substance: PREGABALIN
     Indication: FIBROMYALGIA
     Dosage: 75 MG, 4X/DAY
     Route: 048
     Dates: start: 20161201
  18. VENTOLIN HFA [Concomitant]
     Active Substance: ALBUTEROL SULFATE
     Indication: COUGH
     Dosage: TAKE 1?2 PUFFS BY MOUTH FOUR TIMES PER DAY PRN
     Dates: start: 20160219
  19. OMEPRAZOLE. [Concomitant]
     Active Substance: OMEPRAZOLE
     Dosage: 20 MG, ALTERNATE DAY (EVERY OTHER DAY # 45 TAB (S)
  20. MIRALAX [Concomitant]
     Active Substance: POLYETHYLENE GLYCOL 3350
     Indication: ROUTINE HEALTH MAINTENANCE
     Dosage: DAILY,  (17 GM/ 1 DOSE) (17 GRMAS ORAL ONCE DAILY MIX WITH 6 OZ OF WATER)
     Route: 048
     Dates: start: 20150604
  21. LYRICA [Suspect]
     Active Substance: PREGABALIN
     Indication: ROUTINE HEALTH MAINTENANCE
     Dosage: 75 MG, 3X/DAY
     Route: 048
  22. TRAZODONE [Concomitant]
     Active Substance: TRAZODONE HYDROCHLORIDE
     Indication: ROUTINE HEALTH MAINTENANCE
     Dosage: UNK
  23. LISINOPRIL HCTZ [Concomitant]
     Active Substance: HYDROCHLOROTHIAZIDE\LISINOPRIL
     Dosage: HYDROCHLOROTHIAZIDE: 25 MG, LISINOPRIL : 20 MG (TAKE IN MORNING)
     Route: 048
     Dates: start: 20160913
  24. LISINOPRIL HCTZ [Concomitant]
     Active Substance: HYDROCHLOROTHIAZIDE\LISINOPRIL
     Dosage: HYDROCHLOROTHIAZIDE: 25 MG, LISINOPRIL : 20 MG
     Route: 048
  25. PRENATAL PLUS [Concomitant]
     Active Substance: .ALPHA.-TOCOPHEROL ACETATE, DL-\.BETA.-CAROTENE\ASCORBIC ACID\CALCIUM CARBONATE\CHOLECALCIFEROL\CUPRIC OXIDE\CYANOCOBALAMIN\FERROUS FUMARATE\FOLIC ACID\NIACINAMIDE\PYRIDOXINE HYDROCHLORIDE\RIBOFLAVIN\THIAMINE MONONITRATE\VITAMIN A ACETATE\ZINC OXIDE
     Dosage: 120MG?200MG?2MG?0.01 (TAKE 1 TABLETS BY MOUTH ONCE DAILY)
     Route: 048
     Dates: start: 20130508

REACTIONS (9)
  - Drug hypersensitivity [Unknown]
  - Viral infection [Recovered/Resolved]
  - Cough [Recovered/Resolved]
  - Sinusitis [Recovering/Resolving]
  - Withdrawal syndrome [Unknown]
  - Laryngitis [Recovered/Resolved]
  - Headache [Not Recovered/Not Resolved]
  - Throat irritation [Not Recovered/Not Resolved]
  - Productive cough [Not Recovered/Not Resolved]

NARRATIVE: CASE EVENT DATE: 20180609
